FAERS Safety Report 15368806 (Version 1)
Quarter: 2018Q3

REPORT INFORMATION
  Report Type: Spontaneous
  Country: FR (occurrence: FR)
  Receive Date: 20180911
  Receipt Date: 20180911
  Transmission Date: 20181010
  Serious: Yes (Hospitalization)
  Sender: FDA-Public Use
  Company Number: FR-TEVA-2018-FR-953206

PATIENT
  Age: 24 Year
  Sex: Male

DRUGS (7)
  1. AMOXICILLINE [Suspect]
     Active Substance: AMOXICILLIN
     Indication: TONSILLITIS
     Dosage: 3 GRAM DAILY;
     Route: 048
     Dates: start: 20180615, end: 20180619
  2. ACIDE TIAPROFENIQUE [Suspect]
     Active Substance: TIAPROFENIC ACID
     Indication: TONSILLITIS
     Route: 048
     Dates: start: 20180615, end: 20180619
  3. BACTRIM [Suspect]
     Active Substance: SULFAMETHOXAZOLE\TRIMETHOPRIM
     Indication: INFECTION
     Dosage: 4 DOSAGE FORMS DAILY; COMPRESSED
     Route: 048
     Dates: start: 20180609, end: 20180619
  4. OPDIVO [Suspect]
     Active Substance: NIVOLUMAB
     Indication: MALIGNANT MELANOMA
     Route: 042
     Dates: start: 20180105, end: 20180606
  5. ZYMAD [Concomitant]
     Active Substance: CHOLECALCIFEROL
     Route: 065
  6. PARACETAMOL [Concomitant]
     Active Substance: ACETAMINOPHEN
     Route: 065
  7. TAVANIC 500 MG, COMPRIM? PELLICUL? S?CABLE [Suspect]
     Active Substance: LEVOFLOXACIN
     Indication: INFECTION
     Dosage: 2 DOSAGE FORMS DAILY; TABLET COATED SCORED
     Route: 048
     Dates: start: 20180609, end: 20180619

REACTIONS (4)
  - Histiocytosis haematophagic [Recovered/Resolved]
  - Cholestasis [Recovered/Resolved]
  - Hepatocellular injury [Recovered/Resolved]
  - Generalised erythema [Recovered/Resolved]

NARRATIVE: CASE EVENT DATE: 20180618
